FAERS Safety Report 7306184-X (Version None)
Quarter: 2011Q1

REPORT INFORMATION
  Report Type: 
  Country: None (occurrence: None)
  Receive Date: 20110209
  Receipt Date: 20110202
  Transmission Date: 20110831
  Serious: Yes (Hospitalization, Other)
  Sender: FDA-Public Use
  Company Number: TRP_07539_2011

PATIENT
  Sex: Female

DRUGS (2)
  1. PEG-INTRON [Suspect]
     Indication: HEPATITIS C
     Dates: start: 20101022
  2. RIBASPHERE [Suspect]
     Indication: HEPATITIS C
     Dates: start: 20101022

REACTIONS (7)
  - DYSPNOEA [None]
  - PAIN IN EXTREMITY [None]
  - HAEMOGLOBIN DECREASED [None]
  - FATIGUE [None]
  - ASTHENIA [None]
  - SPINAL FUSION SURGERY [None]
  - PALPITATIONS [None]
